FAERS Safety Report 17146195 (Version 1)
Quarter: 2019Q4

REPORT INFORMATION
  Report Type: Spontaneous
  Country: NL (occurrence: NL)
  Receive Date: 20191212
  Receipt Date: 20191212
  Transmission Date: 20200122
  Serious: Yes (Life-Threatening)
  Sender: FDA-Public Use
  Company Number: NL-TEVA-2019-NL-1149299

PATIENT
  Age: 59 Year
  Sex: Male
  Weight: 93 kg

DRUGS (27)
  1. SIMVASTATINE 40MG [Concomitant]
     Active Substance: SIMVASTATIN
     Dosage: 1DD1 (40MG)
  2. NATRIUMLAURYLSULF/SORBITOL KLYSMA 9/625MG 5ML [Concomitant]
     Dosage: IF NECESSARY, (1 GTT)
  3. ZOLPIDEM [Concomitant]
     Active Substance: ZOLPIDEM TARTRATE
     Dosage: 1DD1 (5MG)
  4. CLOPIDOGREL [Concomitant]
     Active Substance: CLOPIDOGREL BISULFATE
     Dosage: 1DD1 (75MG)
  5. MOVICOLON [Concomitant]
     Active Substance: POLYETHYLENE GLYCOL 3350\POTASSIUM CHLORIDE\SODIUM BICARBONATE\SODIUM CHLORIDE
     Dosage: ZN 1DD1 (1 DOSAGE FORM)
  6. METFORMINE 500MG [Concomitant]
     Dosage: 2DD1 (500MG)
  7. ISOPHANE INSULIN [Concomitant]
     Active Substance: INSULIN NOS
     Dosage: 1DD 44 EH (44 IU)
  8. PREGABALINE 150MG [Concomitant]
     Dosage: 1DD1 (150MG)
  9. AMLODIPINE [Concomitant]
     Active Substance: AMLODIPINE BESYLATE
     Dosage: 1DD1 (10MG)
  10. PARACETAMOL 1000MG [Concomitant]
     Dosage: 3DD1 (1000MG EVERY 8 HOURS)
  11. FRAXIPARINE [Concomitant]
     Active Substance: NADROPARIN CALCIUM
     Dosage: 1DD2850IE
  12. DOXAZOSINE 8MG [Concomitant]
     Dosage: 1DD1 (8MG)
  13. PREGABALINE 75MG [Concomitant]
     Dosage: 1DD1 (75MG)
  14. NACL SPOELING 9MG/ML [Concomitant]
     Dosage: 9MG/ML ZN
  15. NOVORAPID [Concomitant]
     Active Substance: INSULIN ASPART
     Dosage: 3DD 4 EH (4IU EVERY 8 HOURS)
  16. ACETYLSALICYLZUUR 80MG [Concomitant]
     Dosage: 1DD1 (80MG)
  17. AMITRIPTYLINE 10MG [Concomitant]
     Active Substance: AMITRIPTYLINE
     Dosage: 1DD10MG
  18. FINASTERIDE 5MG [Concomitant]
     Active Substance: FINASTERIDE
     Dosage: 1DD1 (5MG)
  19. PREDNISOLON 5MG [Concomitant]
     Dosage: 1DD1 (5MG)
  20. COTRIMOXAZOL 960MG [Concomitant]
     Dosage: 2DD1
  21. LISINOPRIL 10MG [Concomitant]
     Active Substance: LISINOPRIL
     Dosage: 1DD1 (10MG)
  22. HYDROCHLOORTHIAZIDE 25MG [Concomitant]
     Dosage: 1DD1 (25MG PER DAY)
  23. METOPROLOL 100MG [Concomitant]
     Active Substance: METOPROLOL
     Dosage: 1DD1 (100MG)
  24. COTRIMOXAZOL TABLET, 20/100 MG (MILLIGRAM) [Suspect]
     Active Substance: SULFAMETHOXAZOLE\TRIMETHOPRIM
     Indication: URINARY TRACT INFECTION
     Dosage: 2DD1
     Dates: start: 20190905, end: 20191027
  25. PANTOPRAZOL 40MG [Concomitant]
     Active Substance: PANTOPRAZOLE SODIUM
     Dosage: 1DD1 (40MG)
  26. MYCOFENOLAATMOFETIL 500MG [Concomitant]
     Dosage: 2DD1 (500MG)
  27. ADVAGRAF 3MG [Concomitant]
     Dosage: 1DD1 (3MG)

REACTIONS (1)
  - Hyperkalaemia [Recovering/Resolving]

NARRATIVE: CASE EVENT DATE: 20191026
